FAERS Safety Report 25048078 (Version 2)
Quarter: 2025Q1

REPORT INFORMATION
  Report Type: Report from Study
  Country: US (occurrence: US)
  Receive Date: 20250306
  Receipt Date: 20250321
  Transmission Date: 20250409
  Serious: No
  Sender: ACADIA PHARMACEUTICALS
  Company Number: US-ACADIA PHARMACEUTICALS INC.-ACA-2025-TRF-002005

PATIENT
  Age: 8 Year
  Sex: Female

DRUGS (5)
  1. DAYBUE [Suspect]
     Active Substance: TROFINETIDE
     Indication: Rett syndrome
     Route: 048
     Dates: end: 20250209
  2. DAYBUE [Suspect]
     Active Substance: TROFINETIDE
     Route: 048
     Dates: start: 20250210, end: 20250212
  3. DAYBUE [Suspect]
     Active Substance: TROFINETIDE
     Route: 048
     Dates: start: 20250213
  4. DAYBUE [Suspect]
     Active Substance: TROFINETIDE
     Dosage: 40 MILLILITER, BID
     Route: 048
  5. DAYBUE [Suspect]
     Active Substance: TROFINETIDE
     Dosage: 1 MILLILITER, QD
     Route: 048

REACTIONS (2)
  - Diarrhoea [Recovering/Resolving]
  - Underdose [Not Recovered/Not Resolved]

NARRATIVE: CASE EVENT DATE: 20250201
